FAERS Safety Report 8824637 (Version 2)
Quarter: 2012Q4

REPORT INFORMATION
  Report Type: 
  Country: HU (occurrence: HU)
  Receive Date: 20121004
  Receipt Date: 20121231
  Transmission Date: 20130627
  Serious: Yes (Other)
  Sender: FDA-Public Use
  Company Number: PHHY2012HU084829

PATIENT
  Sex: Male

DRUGS (1)
  1. CICLOSPORIN [Suspect]
     Indication: STEM CELL TRANSPLANT

REACTIONS (5)
  - Macular oedema [Recovered/Resolved]
  - Uveitis [Recovered/Resolved]
  - Retinal infiltrates [Recovered/Resolved]
  - Toxicity to various agents [Recovered/Resolved]
  - Papilloedema [Recovered/Resolved]
